FAERS Safety Report 7466378-X (Version None)
Quarter: 2011Q2

REPORT INFORMATION
  Report Type: 
  Country: None (occurrence: None)
  Receive Date: 20110509
  Receipt Date: 20100816
  Transmission Date: 20111010
  Serious: Yes (Other)
  Sender: FDA-Public Use
  Company Number: US-ALEXION-A201000876

PATIENT
  Sex: Female

DRUGS (4)
  1. CIPRO [Concomitant]
     Indication: URINARY TRACT INFECTION
     Dosage: 500 MG, BID
     Route: 048
     Dates: start: 20100730
  2. SOLIRIS [Suspect]
     Indication: PAROXYSMAL NOCTURNAL HAEMOGLOBINURIA
     Dosage: 900 MG, UNK
     Route: 042
     Dates: start: 20080101
  3. ARIXTRA [Concomitant]
     Indication: ANTICOAGULANT THERAPY
     Dosage: 7.5 MG, QD
  4. SOLIRIS [Suspect]
     Dosage: 1200 MG, Q2W
     Route: 042

REACTIONS (4)
  - CHOLELITHIASIS [None]
  - URINARY TRACT INFECTION [None]
  - DIARRHOEA [None]
  - BACK PAIN [None]
